FAERS Safety Report 9646395 (Version 1)
Quarter: 2013Q4

REPORT INFORMATION
  Report Type: Spontaneous
  Country: US (occurrence: None)
  Receive Date: 20131024
  Receipt Date: 20131024
  Transmission Date: 20140711
  Serious: Yes (Death, Other)
  Sender: FDA-Public Use
  Company Number: 1838197

PATIENT
  Sex: 0

DRUGS (4)
  1. HYDROMORPHONE HYDROCHLORIDE [Suspect]
     Indication: SICKLE CELL ANAEMIA WITH CRISIS
  2. HYDROMORPHONE HYDROCHLORIDE [Suspect]
     Indication: PAIN
  3. KETOROLAC TROMETAMOL [Suspect]
     Indication: SICKLE CELL ANAEMIA WITH CRISIS
     Dosage: 30 MG MILLIGRAM(S) (1 HOUR), INTRAVENOUS (NOT OTHERWISE SPECIFIED)
     Route: 042
  4. KETOROLAC TROMETAMOL [Suspect]
     Indication: PAIN
     Dosage: 30 MG MILLIGRAM(S) (1 HOUR), INTRAVENOUS (NOT OTHERWISE SPECIFIED)
     Route: 042

REACTIONS (7)
  - Gastrointestinal haemorrhage [None]
  - Acute chest syndrome [None]
  - Haemodialysis [None]
  - Haemoglobin decreased [None]
  - Pulseless electrical activity [None]
  - Treatment failure [None]
  - Renal failure acute [None]
